FAERS Safety Report 6290174-2 (Version None)
Quarter: 2009Q3

REPORT INFORMATION
  Report Type: 
  Country: None (occurrence: None)
  Receive Date: 20090730
  Receipt Date: 20081230
  Transmission Date: 20100115
  Serious: No
  Sender: FDA-Public Use
  Company Number: US-BRISTOL-MYERS SQUIBB COMPANY-14458137

PATIENT
  Age: 80 Year
  Sex: Male
  Weight: 84 kg

DRUGS (1)
  1. COUMADIN [Suspect]
     Indication: VASCULAR INSUFFICIENCY
     Dates: start: 20081201

REACTIONS (2)
  - BLUE TOE SYNDROME [None]
  - INTERNATIONAL NORMALISED RATIO DECREASED [None]
